FAERS Safety Report 25420903 (Version 2)
Quarter: 2025Q2

REPORT INFORMATION
  Report Type: Spontaneous
  Country: US (occurrence: US)
  Receive Date: 20250611
  Receipt Date: 20250630
  Transmission Date: 20250717
  Serious: No
  Sender: SANOFI AVENTIS
  Company Number: US-SA-2025SA164499

PATIENT
  Age: 36 Year
  Sex: Female

DRUGS (1)
  1. DUPIXENT [Suspect]
     Active Substance: DUPILUMAB
     Indication: Dermatitis atopic
     Dosage: 300 MG, Q3W
     Route: 058
     Dates: start: 202502

REACTIONS (5)
  - Rebound eczema [Unknown]
  - Injection site swelling [Recovered/Resolved]
  - Injection site erythema [Unknown]
  - Pruritus [Unknown]
  - Inappropriate schedule of product administration [Unknown]

NARRATIVE: CASE EVENT DATE: 20250101
